FAERS Safety Report 25651259 (Version 3)
Quarter: 2025Q4

REPORT INFORMATION
  Report Type: Spontaneous
  Country: US (occurrence: US)
  Receive Date: 20250806
  Receipt Date: 20251111
  Transmission Date: 20260118
  Serious: No
  Sender: NOVARTIS
  Company Number: US-002147023-NVSC2025US124183

PATIENT
  Sex: Female

DRUGS (1)
  1. TEGRETOL XR [Suspect]
     Active Substance: CARBAMAZEPINE
     Indication: Product used for unknown indication
     Dosage: 200 MG (5 TIMES A DAY)
     Route: 048
     Dates: start: 2004

REACTIONS (3)
  - Illness [Unknown]
  - Trigeminal neuralgia [Unknown]
  - Product quality issue [Unknown]
